FAERS Safety Report 4383583-X (Version None)
Quarter: 2004Q2

REPORT INFORMATION
  Report Type: 
  Country: None (occurrence: None)
  Receive Date: 20040618
  Receipt Date: 20040610
  Transmission Date: 20050107
  Serious: Yes (Hospitalization)
  Sender: FDA-Public Use
  Company Number: 0104-1695

PATIENT
  Age: 58 Year
  Sex: Male

DRUGS (4)
  1. ADVICOR [Suspect]
     Indication: DYSLIPIDAEMIA
     Dosage: 2 TABLET (S) QHS PO
     Route: 048
     Dates: start: 20040501, end: 20040603
  2. HYDROCHLOROTHIAZIDE [Concomitant]
  3. LISINOPRIL [Concomitant]
  4. ASPIRIN [Concomitant]

REACTIONS (6)
  - BLOOD ALBUMIN DECREASED [None]
  - DIARRHOEA [None]
  - HAEMORRHOIDS [None]
  - PROTEIN TOTAL DECREASED [None]
  - RECTAL HAEMORRHAGE [None]
  - RHABDOMYOLYSIS [None]
